FAERS Safety Report 4591057-6 (Version None)
Quarter: 2005Q1

REPORT INFORMATION
  Report Type: 
  Country: None (occurrence: None)
  Receive Date: 20050222
  Receipt Date: 20050222
  Transmission Date: 20050727
  Serious: No
  Sender: FDA-Public Use
  Company Number: None

PATIENT
  Age: 25 Year
  Sex: Male

DRUGS (1)
  1. CORICIDIN COLD MEDICINE O.T.C. [Suspect]
     Indication: NASOPHARYNGITIS
     Dosage: PO
     Route: 048

REACTIONS (3)
  - SKIN TIGHTNESS [None]
  - SWELLING FACE [None]
  - THROAT TIGHTNESS [None]
